FAERS Safety Report 21318094 (Version 1)
Quarter: 2022Q3

REPORT INFORMATION
  Report Type: Spontaneous
  Country: US (occurrence: US)
  Receive Date: 20220911
  Receipt Date: 20220911
  Transmission Date: 20221027
  Serious: No
  Sender: FDA-Public Use
  Company Number: US-SANOFI-01245896

PATIENT
  Age: 62 Year
  Sex: Female
  Weight: 97.8 kg

DRUGS (4)
  1. THYMOGLOBULIN [Suspect]
     Active Substance: LAPINE T-LYMPHOCYTE IMMUNE GLOBULIN
     Indication: Immunosuppressant drug therapy
     Dosage: 125 MG, Q4H
     Route: 041
     Dates: start: 20220805
  2. BENADRYL [Interacting]
     Active Substance: DIPHENHYDRAMINE HYDROCHLORIDE
     Dosage: 25 MG
     Route: 042
  3. TYLENOL [Concomitant]
     Active Substance: ACETAMINOPHEN
     Dosage: 1000MG
     Route: 048
  4. HYDROCORTISONE [Concomitant]
     Active Substance: HYDROCORTISONE
     Dosage: 100MG
     Route: 042

REACTIONS (4)
  - Agitation [Unknown]
  - Hypertension [Unknown]
  - Body temperature increased [Unknown]
  - Hypotension [Unknown]

NARRATIVE: CASE EVENT DATE: 20220805
